FAERS Safety Report 9133016 (Version 1)
Quarter: 2013Q1

REPORT INFORMATION
  Report Type: Spontaneous
  Country: BR (occurrence: BR)
  Receive Date: 20130116
  Receipt Date: 20130116
  Transmission Date: 20140127
  Serious: Yes (Other)
  Sender: FDA-Public Use
  Company Number: PHHY2012BR124238

PATIENT
  Sex: Female
  Weight: 64 kg

DRUGS (6)
  1. DIOVAN TRIPLE [Suspect]
     Indication: CARDIAC DISORDER
     Dosage: 0.5 DF(160 MG VALS/ 10 MG AMLO/ 12.5 MG HCTZ), DAILY AFTER BREAKFAST
     Dates: start: 2002
  2. OMEPRAZOLE [Concomitant]
     Indication: GASTROINTESTINAL DISORDER
     Dosage: 1 DF (20 MG), DAILY
     Route: 048
  3. OMEPRAZOLE [Concomitant]
     Dosage: 2 DF (20 MG), DAILY
     Route: 048
     Dates: start: 20130108
  4. OSCAL D [Concomitant]
     Indication: OSTEOPOROSIS
     Dosage: 1 DF, DAILY
     Route: 048
  5. ASPIRINA PREVENT [Concomitant]
     Indication: INFARCTION
     Dosage: 1 DF (100 MG), DAILY
     Route: 048
  6. PROCORALAN [Concomitant]
     Indication: CORONARY ARTERY DISEASE
     Dosage: 1 DF, BID
     Route: 048
     Dates: start: 201212

REACTIONS (6)
  - Osteopenia [Not Recovered/Not Resolved]
  - Diabetes mellitus [Not Recovered/Not Resolved]
  - Infarction [Unknown]
  - Intestinal polyp [Recovered/Resolved]
  - Confusional state [Unknown]
  - Wrong technique in drug usage process [Unknown]
